FAERS Safety Report 16536355 (Version 1)
Quarter: 2019Q3

REPORT INFORMATION
  Report Type: Spontaneous
  Country: US (occurrence: US)
  Receive Date: 20190705
  Receipt Date: 20190705
  Transmission Date: 20191004
  Serious: No
  Sender: FDA-Public Use
  Company Number: US-TEVA-2019-US-1069767

PATIENT
  Sex: Female

DRUGS (1)
  1. FEXOFENADINE [Suspect]
     Active Substance: FEXOFENADINE HYDROCHLORIDE
     Indication: HYPERSENSITIVITY
     Route: 048
     Dates: start: 201906

REACTIONS (3)
  - Headache [Unknown]
  - Vomiting [Unknown]
  - Nausea [Unknown]
